FAERS Safety Report 14979938 (Version 1)
Quarter: 2018Q2

REPORT INFORMATION
  Report Type: Spontaneous
  Country: US (occurrence: US)
  Receive Date: 20180516
  Receipt Date: 20180516
  Transmission Date: 20180711
  Serious: Yes (Death)
  Sender: FDA-Public Use
  Company Number: None

PATIENT
  Age: 24 Year
  Sex: Male
  Weight: 60.75 kg

DRUGS (2)
  1. ESCITALOPRAM [Suspect]
     Active Substance: ESCITALOPRAM OXALATE
     Indication: DRUG THERAPY
     Dosage: ?          QUANTITY:1 DF DOSAGE FORM;?
     Route: 048
     Dates: start: 20180227, end: 20180326
  2. ESCITALOPRAM [Suspect]
     Active Substance: ESCITALOPRAM OXALATE
     Dosage: ?          QUANTITY:0.5 DF DOSAGE FORM;?
     Route: 048
     Dates: start: 20180326, end: 20180409

REACTIONS (6)
  - Emotional disorder [None]
  - Impaired self-care [None]
  - Speech disorder [None]
  - Crying [None]
  - Therapy change [None]
  - Weight decreased [None]

NARRATIVE: CASE EVENT DATE: 20180409
